FAERS Safety Report 6439660-2 (Version None)
Quarter: 2009Q4

REPORT INFORMATION
  Report Type: 
  Country: None (occurrence: None)
  Receive Date: 20091112
  Receipt Date: 20091112
  Transmission Date: 20100525
  Serious: Yes (Other)
  Sender: FDA-Public Use
  Company Number: None

PATIENT
  Age: 62 Year
  Sex: Female
  Weight: 90.7194 kg

DRUGS (1)
  1. CYMBALTA [Suspect]
     Dosage: ONE TO BE TAKEN ONE T PO
     Route: 048
     Dates: start: 20060612, end: 20060614

REACTIONS (2)
  - RASH ERYTHEMATOUS [None]
  - SCRATCH [None]
